FAERS Safety Report 23558159 (Version 1)
Quarter: 2024Q1

REPORT INFORMATION
  Report Type: Spontaneous
  Country: US (occurrence: US)
  Receive Date: 20240223
  Receipt Date: 20240223
  Transmission Date: 20240410
  Serious: Yes (Other)
  Sender: FDA-Public Use
  Company Number: US-Indoco-000504

PATIENT
  Age: 50 Year

DRUGS (1)
  1. APIXABAN [Interacting]
     Active Substance: APIXABAN
     Indication: Atrial fibrillation

REACTIONS (2)
  - Drug interaction [Unknown]
  - Ischaemic stroke [Unknown]
